FAERS Safety Report 8865998 (Version 1)
Quarter: 2012Q4

REPORT INFORMATION
  Report Type: Report from Study
  Country: US (occurrence: US)
  Receive Date: 20121025
  Receipt Date: 20121025
  Transmission Date: 20130627
  Serious: No
  Sender: FDA-Public Use
  Company Number: US-ABBOTT-11P-163-0884506-00

PATIENT
  Sex: Female
  Weight: 73.55 kg

DRUGS (6)
  1. LUPRON DEPOT 3.75 MG [Suspect]
     Indication: UTERINE HAEMORRHAGE
     Route: 030
  2. LUPRON DEPOT 3.75 MG [Suspect]
     Indication: COLITIS
  3. LUPRON DEPOT 3.75 MG [Suspect]
     Indication: THROMBOSIS
  4. DIPENTUM [Concomitant]
     Indication: COLITIS ULCERATIVE
  5. IRON [Concomitant]
     Indication: ANAEMIA
  6. VITAMIN B-12 [Concomitant]
     Indication: VITAMIN SUPPLEMENTATION

REACTIONS (2)
  - Muscle spasms [Not Recovered/Not Resolved]
  - Diarrhoea [Not Recovered/Not Resolved]
